FAERS Safety Report 20010101 (Version 1)
Quarter: 2021Q4

REPORT INFORMATION
  Report Type: Spontaneous
  Country: US (occurrence: US)
  Receive Date: 20211028
  Receipt Date: 20211028
  Transmission Date: 20220303
  Serious: Yes (Death)
  Sender: FDA-Public Use
  Company Number: None

PATIENT
  Age: 84 Year
  Sex: Male
  Weight: 83.91 kg

DRUGS (6)
  1. ERLEADA [Suspect]
     Active Substance: APALUTAMIDE
     Indication: Prostate cancer metastatic
     Route: 048
     Dates: start: 20211014, end: 20211025
  2. ELIGARD [Concomitant]
     Active Substance: LEUPROLIDE ACETATE
  3. XGEVA [Concomitant]
     Active Substance: DENOSUMAB
  4. PREGABALIN [Concomitant]
     Active Substance: PREGABALIN
  5. VIAGRA [Concomitant]
     Active Substance: SILDENAFIL CITRATE
  6. METFORMIN [Concomitant]
     Active Substance: METFORMIN HYDROCHLORIDE

REACTIONS (1)
  - Death [None]

NARRATIVE: CASE EVENT DATE: 20211025
